FAERS Safety Report 6309453-5 (Version None)
Quarter: 2009Q3

REPORT INFORMATION
  Report Type: 
  Country: None (occurrence: None)
  Receive Date: 20090811
  Receipt Date: 20090528
  Transmission Date: 20100115
  Serious: No
  Sender: FDA-Public Use
  Company Number: 1000006601

PATIENT
  Age: 36 Year
  Sex: Female

DRUGS (3)
  1. SAVELLA [Suspect]
     Indication: FIBROMYALGIA
     Dosage: 12.5 MG (12.5 MG,1 IN 1 D),ORAL;  25 MG (12.5 MG, 2 IN 1 D),ORAL; 50 MG (25 MG, 2 IN 1 D),ORAL
     Route: 048
     Dates: start: 20090501, end: 20090501
  2. SAVELLA [Suspect]
     Indication: FIBROMYALGIA
     Dosage: 12.5 MG (12.5 MG,1 IN 1 D),ORAL;  25 MG (12.5 MG, 2 IN 1 D),ORAL; 50 MG (25 MG, 2 IN 1 D),ORAL
     Route: 048
     Dates: start: 20090501, end: 20090501
  3. SAVELLA [Suspect]
     Indication: FIBROMYALGIA
     Dosage: 12.5 MG (12.5 MG,1 IN 1 D),ORAL;  25 MG (12.5 MG, 2 IN 1 D),ORAL; 50 MG (25 MG, 2 IN 1 D),ORAL
     Route: 048
     Dates: start: 20090501, end: 20090501

REACTIONS (1)
  - URTICARIA [None]
